FAERS Safety Report 10175202 (Version 1)
Quarter: 2014Q2

REPORT INFORMATION
  Report Type: Spontaneous
  Country: US (occurrence: US)
  Receive Date: 20140515
  Receipt Date: 20140515
  Transmission Date: 20141212
  Serious: No
  Sender: FDA-Public Use
  Company Number: US-VIVUS-2014V1000063

PATIENT
  Sex: Male
  Weight: 108.05 kg

DRUGS (6)
  1. QSYMIA 3.75MG/23MG [Suspect]
     Indication: WEIGHT DECREASED
     Route: 048
     Dates: start: 2013, end: 2013
  2. QSYMIA 3.75MG/23MG [Suspect]
     Route: 048
     Dates: start: 201312
  3. QSYMIA 7.5MG/46MG [Suspect]
     Indication: WEIGHT DECREASED
     Route: 048
     Dates: start: 2013, end: 201312
  4. EDARBI [Concomitant]
     Indication: HYPERTENSION
     Route: 048
     Dates: start: 2013
  5. CRESTOR [Concomitant]
     Indication: BLOOD CHOLESTEROL
     Route: 048
  6. ASPIRIN [Concomitant]
     Indication: PRODUCT USED FOR UNKNOWN INDICATION
     Route: 048

REACTIONS (4)
  - Exercise tolerance decreased [Recovered/Resolved]
  - Dysgeusia [Recovered/Resolved]
  - Paraesthesia [Recovered/Resolved]
  - Eye pain [Recovered/Resolved]
